FAERS Safety Report 20004053 (Version 1)
Quarter: 2021Q4

REPORT INFORMATION
  Report Type: Spontaneous
  Country: US (occurrence: US)
  Receive Date: 20211028
  Receipt Date: 20211028
  Transmission Date: 20220303
  Serious: No
  Sender: FDA-Public Use
  Company Number: 2021A757253

PATIENT
  Age: 407 Month
  Sex: Female
  Weight: 99.8 kg

DRUGS (1)
  1. FASENRA [Suspect]
     Active Substance: BENRALIZUMAB
     Indication: Asthma
     Dosage: 30.0MG/ML UNKNOWN
     Route: 058
     Dates: start: 202108

REACTIONS (4)
  - COVID-19 [Unknown]
  - Tremor [Unknown]
  - Incorrect dose administered by product [Unknown]
  - Device leakage [Unknown]

NARRATIVE: CASE EVENT DATE: 20210901
